FAERS Safety Report 16554873 (Version 1)
Quarter: 2019Q3

REPORT INFORMATION
  Report Type: Spontaneous
  Country: US (occurrence: US)
  Receive Date: 20190529
  Receipt Date: 20190529
  Transmission Date: 20191004
  Serious: Yes (Other)
  Sender: FDA-Public Use
  Company Number: None

PATIENT
  Age: 38 Year
  Sex: Male
  Weight: 95.25 kg

DRUGS (1)
  1. FLUORIDEX [Suspect]
     Active Substance: STANNOUS FLUORIDE
     Indication: DENTAL FLUORIDE THERAPY
     Route: 048
     Dates: start: 20161108, end: 20190204

REACTIONS (5)
  - Abdominal pain [None]
  - Muscular weakness [None]
  - Eructation [None]
  - Paraesthesia [None]
  - Gastrointestinal pain [None]

NARRATIVE: CASE EVENT DATE: 20161113
